FAERS Safety Report 7217068-X (Version None)
Quarter: 2011Q1

REPORT INFORMATION
  Report Type: 
  Country: None (occurrence: None)
  Receive Date: 20110110
  Receipt Date: 20101228
  Transmission Date: 20110831
  Serious: Yes (Hospitalization, Other)
  Sender: FDA-Public Use
  Company Number: US-ELI_LILLY_AND_COMPANY-US201101000201

PATIENT
  Age: 41 Year
  Sex: Male

DRUGS (2)
  1. DEPAKOTE [Concomitant]
  2. ZYPREXA [Suspect]
     Indication: BIPOLAR DISORDER
     Dates: end: 20080101

REACTIONS (4)
  - HYPERTENSION [None]
  - JOINT INJURY [None]
  - BIPOLAR DISORDER [None]
  - WEIGHT INCREASED [None]
